FAERS Safety Report 22596152 (Version 1)
Quarter: 2023Q2

REPORT INFORMATION
  Report Type: Report from Study
  Country: ES (occurrence: ES)
  Receive Date: 20230613
  Receipt Date: 20230613
  Transmission Date: 20230722
  Serious: Yes (Other)
  Sender: FDA-Public Use
  Company Number: ES-JNJFOC-20230616229

PATIENT

DRUGS (19)
  1. REMICADE [Suspect]
     Active Substance: INFLIXIMAB
     Indication: Inflammatory bowel disease
     Route: 041
  2. REMICADE [Suspect]
     Active Substance: INFLIXIMAB
     Indication: Rheumatoid arthritis
  3. REMICADE [Suspect]
     Active Substance: INFLIXIMAB
     Indication: Psoriasis
  4. REMICADE [Suspect]
     Active Substance: INFLIXIMAB
     Indication: Ankylosing spondylitis
  5. REMICADE [Suspect]
     Active Substance: INFLIXIMAB
     Indication: Arthritis
  6. REMICADE [Suspect]
     Active Substance: INFLIXIMAB
     Indication: Ophthalmoplegia
  7. REMICADE [Suspect]
     Active Substance: INFLIXIMAB
     Indication: Alopecia scarring
  8. SIMPONI [Suspect]
     Active Substance: GOLIMUMAB
     Indication: Inflammatory bowel disease
     Route: 058
  9. SIMPONI [Suspect]
     Active Substance: GOLIMUMAB
     Indication: Rheumatoid arthritis
  10. SIMPONI [Suspect]
     Active Substance: GOLIMUMAB
     Indication: Psoriasis
  11. SIMPONI [Suspect]
     Active Substance: GOLIMUMAB
     Indication: Ankylosing spondylitis
  12. SIMPONI [Suspect]
     Active Substance: GOLIMUMAB
     Indication: Ophthalmoplegia
  13. SIMPONI [Suspect]
     Active Substance: GOLIMUMAB
     Indication: Ophthalmoplegia
  14. SIMPONI [Suspect]
     Active Substance: GOLIMUMAB
     Indication: Alopecia scarring
  15. PREDNISONE [Concomitant]
     Active Substance: PREDNISONE
  16. METHOTREXATE [Concomitant]
     Active Substance: METHOTREXATE
  17. LEFLUNOMIDE [Concomitant]
     Active Substance: LEFLUNOMIDE
  18. MYCOPHENOLATE MOFETIL [Concomitant]
     Active Substance: MYCOPHENOLATE MOFETIL
  19. AZATHIOPRINE [Concomitant]
     Active Substance: AZATHIOPRINE

REACTIONS (2)
  - Mucocutaneous leishmaniasis [Recovered/Resolved]
  - Cutaneous leishmaniasis [Recovered/Resolved]
